FAERS Safety Report 4980159-8 (Version None)
Quarter: 2006Q2

REPORT INFORMATION
  Report Type: 
  Country: None (occurrence: None)
  Receive Date: 20060424
  Receipt Date: 20060412
  Transmission Date: 20061013
  Serious: Yes (Other)
  Sender: FDA-Public Use
  Company Number: CA-JNJFOC-20060204874

PATIENT
  Sex: Female
  Weight: 63 kg

DRUGS (16)
  1. REMICADE [Suspect]
     Indication: RHEUMATOID ARTHRITIS
     Route: 042
     Dates: start: 20010320, end: 20060112
  2. METHOTREXATE [Concomitant]
     Indication: POLYARTHRITIS
     Route: 048
  3. PREDNISONE [Concomitant]
     Indication: POLYARTHRITIS
     Route: 048
  4. TYLENOL (CAPLET) [Concomitant]
     Indication: POLYARTHRITIS
     Route: 048
  5. CALCIUM GLUCONATE [Concomitant]
     Indication: NUTRITIONAL SUPPORT
     Route: 048
  6. MULTI-VITAMIN [Concomitant]
     Route: 048
  7. MULTI-VITAMIN [Concomitant]
     Route: 048
  8. MULTI-VITAMIN [Concomitant]
     Route: 048
  9. MULTI-VITAMIN [Concomitant]
     Route: 048
  10. MULTI-VITAMIN [Concomitant]
     Route: 048
  11. MULTI-VITAMIN [Concomitant]
     Route: 048
  12. MULTI-VITAMIN [Concomitant]
     Route: 048
  13. MULTI-VITAMIN [Concomitant]
     Indication: NUTRITIONAL SUPPORT
     Route: 048
  14. PREMARIN [Concomitant]
     Route: 048
  15. LEUCOVORIN [Concomitant]
     Indication: NUTRITIONAL SUPPORT
     Route: 048
  16. ACTONEL [Concomitant]
     Indication: OSTEOPOROSIS
     Route: 048

REACTIONS (3)
  - BREAST CANCER [None]
  - NASOPHARYNGITIS [None]
  - URINARY TRACT INFECTION [None]
